FAERS Safety Report 8525054-2 (Version None)
Quarter: 2012Q3

REPORT INFORMATION
  Report Type: 
  Country: None (occurrence: None)
  Receive Date: 20120720
  Receipt Date: 20120710
  Transmission Date: 20120928
  Serious: Yes (Hospitalization)
  Sender: FDA-Public Use
  Company Number: IT-BRISTOL-MYERS SQUIBB COMPANY-16758575

PATIENT
  Age: 80 Year
  Sex: Male

DRUGS (13)
  1. ALLOPURINOL [Concomitant]
  2. LASIX [Concomitant]
     Dosage: TAB
  3. NOVOLOG MIX 70/30 [Concomitant]
     Dosage: 100U/ML SUSPENSION FOR INJECTION' FLEXPEN
  4. CORDARONE [Concomitant]
     Dosage: TAB
  5. PANTOPRAZOLE SODIUM [Concomitant]
     Dosage: TAB
  6. ATORVASTATIN CALCIUM [Concomitant]
     Dosage: TAB
  7. COUMADIN [Suspect]
     Indication: MYOCARDIAL ISCHAEMIA
     Dates: end: 20120519
  8. BISOPROLOL FUMARATE [Concomitant]
     Dosage: TAB
  9. LUVION [Concomitant]
     Dosage: TAB
  10. ALIFLUS DISKUS [Concomitant]
     Dosage: 1DF=50/250 POWDER
     Route: 055
  11. ASPIRIN [Concomitant]
     Dosage: TAB
     Route: 048
  12. PHENOBARBITAL TAB [Concomitant]
     Dosage: TAB
  13. NOVORAPID [Concomitant]
     Dosage: 1DF=100 U/ML SOLUTION FOR INJECTION FLEXPEN

REACTIONS (9)
  - MELAENA [None]
  - CONTUSION [None]
  - ANAEMIA [None]
  - HYPOTENSION [None]
  - OVERDOSE [None]
  - GASTROINTESTINAL HAEMORRHAGE [None]
  - ASTHENIA [None]
  - PRESYNCOPE [None]
  - DRUG ADMINISTRATION ERROR [None]
